FAERS Safety Report 5903313-7 (Version None)
Quarter: 2008Q3

REPORT INFORMATION
  Report Type: 
  Country: None (occurrence: None)
  Receive Date: 20080930
  Receipt Date: 20080926
  Transmission Date: 20090109
  Serious: Yes (Death)
  Sender: FDA-Public Use
  Company Number: B0538888A

PATIENT
  Age: 73 Year
  Sex: Female

DRUGS (1)
  1. ALKERAN [Suspect]
     Indication: AMYLOIDOSIS
     Dosage: 140MGM2 PER DAY
     Route: 042

REACTIONS (2)
  - CARDIAC FAILURE [None]
  - CONDITION AGGRAVATED [None]
